FAERS Safety Report 9307942 (Version 1)
Quarter: 2013Q2

REPORT INFORMATION
  Report Type: Report from Study
  Country: CA (occurrence: CA)
  Receive Date: 20130524
  Receipt Date: 20130524
  Transmission Date: 20140414
  Serious: Yes (Hospitalization)
  Sender: FDA-Public Use
  Company Number: PHHY2012CA099898

PATIENT
  Sex: Male

DRUGS (5)
  1. EXJADE [Suspect]
     Indication: IRON OVERLOAD
     Dosage: 2 DF, QD
     Route: 048
  2. EXJADE [Suspect]
     Dosage: 1 DF, DAILY
     Route: 048
  3. EXJADE [Suspect]
     Dosage: UNK UKN, UNK
  4. EPREX [Concomitant]
  5. CHOLESTEROL [Concomitant]

REACTIONS (2)
  - Malaise [Unknown]
  - Diarrhoea [Unknown]
